FAERS Safety Report 23740953 (Version 1)
Quarter: 2024Q2

REPORT INFORMATION
  Report Type: Spontaneous
  Country: US (occurrence: US)
  Receive Date: 20240415
  Receipt Date: 20240415
  Transmission Date: 20240716
  Serious: No
  Sender: FDA-Public Use
  Company Number: US-APOTEX-2024AP004307

PATIENT
  Age: 56 Year
  Sex: Female

DRUGS (4)
  1. TRANEXAMIC ACID [Suspect]
     Active Substance: TRANEXAMIC ACID
     Indication: Product used for unknown indication
     Dosage: 1 GRAM
     Route: 065
  2. EPINEPHRINE [Concomitant]
     Active Substance: EPINEPHRINE
     Indication: Product used for unknown indication
     Dosage: 350 MILLILITER (ML) OF TUMESCENT (EPINEPHNINE/LIDOCAINE/ BUPIVACAINE)
     Route: 065
  3. LIDOCAINE [Concomitant]
     Active Substance: LIDOCAINE
     Indication: Product used for unknown indication
     Dosage: 350 MILLILITER (ML) OF TUMESCENT (EPINEPHNINE/LIDOCAINE/ BUPIVACAINE)
     Route: 065
  4. BUPIVACAINE [Concomitant]
     Active Substance: BUPIVACAINE
     Indication: Product used for unknown indication
     Dosage: 350 MILLILITER (ML) OF TUMESCENT (EPINEPHNINE/LIDOCAINE/ BUPIVACAINE)
     Route: 065

REACTIONS (2)
  - Eschar [Recovering/Resolving]
  - Skin discolouration [Recovering/Resolving]
